FAERS Safety Report 18717837 (Version 1)
Quarter: 2021Q1

REPORT INFORMATION
  Report Type: Spontaneous
  Country: IT (occurrence: IT)
  Receive Date: 20210108
  Receipt Date: 20210108
  Transmission Date: 20210419
  Serious: Yes (Other)
  Sender: FDA-Public Use
  Company Number: IT-AMGEN-ITASP2020213485

PATIENT
  Age: 65 Year
  Sex: Male

DRUGS (1)
  1. MVASI [Suspect]
     Active Substance: BEVACIZUMAB-AWWB
     Indication: NEOVASCULAR AGE-RELATED MACULAR DEGENERATION
     Dosage: 0.5 MICROGRAM
     Route: 065
     Dates: start: 20200729, end: 20201118

REACTIONS (2)
  - Visual impairment [Unknown]
  - Macular oedema [Unknown]

NARRATIVE: CASE EVENT DATE: 20201203
